FAERS Safety Report 18898599 (Version 1)
Quarter: 2021Q1

REPORT INFORMATION
  Report Type: Spontaneous
  Country: US (occurrence: US)
  Receive Date: 20210216
  Receipt Date: 20210216
  Transmission Date: 20210420
  Serious: No
  Sender: FDA-Public Use
  Company Number: US-FERRINGPH-2020FE01285

PATIENT
  Age: 39 Year
  Sex: Female

DRUGS (1)
  1. NOVAREL [Suspect]
     Active Substance: CHORIOGONADOTROPIN ALFA
     Indication: PRODUCT USED FOR UNKNOWN INDICATION
     Route: 065

REACTIONS (1)
  - Drug ineffective [Unknown]
